FAERS Safety Report 9095426 (Version 1)
Quarter: 2013Q1

REPORT INFORMATION
  Report Type: Spontaneous
  Country: US (occurrence: None)
  Receive Date: 20130123
  Receipt Date: 20130123
  Transmission Date: 20140127
  Serious: Yes (Other)
  Sender: FDA-Public Use
  Company Number: US-0096215

PATIENT
  Age: 55 Year
  Sex: Female
  Weight: 98.43 kg

DRUGS (1)
  1. SYSTANE EYE DROPS [Suspect]
     Route: 047
     Dates: start: 2012

REACTIONS (3)
  - Corneal abrasion [None]
  - Eye injury [None]
  - Product packaging issue [None]
